FAERS Safety Report 6477788-1 (Version None)
Quarter: 2009Q4

REPORT INFORMATION
  Report Type: 
  Country: None (occurrence: None)
  Receive Date: 20091207
  Receipt Date: 20091123
  Transmission Date: 20100525
  Serious: Yes (Hospitalization)
  Sender: FDA-Public Use
  Company Number: US-SANOFI-AVENTIS-200915166US

PATIENT
  Age: 42 Year
  Sex: Male
  Weight: 66.68 kg

DRUGS (17)
  1. ENOXAPARIN SODIUM [Suspect]
     Indication: THROMBOSIS PROPHYLAXIS
     Dates: start: 20090602, end: 20090701
  2. NICOTINE [Concomitant]
     Route: 062
  3. PERCOCET [Concomitant]
     Dosage: PERCOCET 5/325 MG ;1 PO EVERY 4-6 HOURS. PRN ;PAIN
     Route: 048
  4. RISPERIDONE [Concomitant]
     Route: 048
  5. IRON [Concomitant]
     Route: 048
  6. ASCORBIC ACID [Concomitant]
     Route: 048
  7. AMBIEN [Concomitant]
     Route: 048
  8. COMPAZINE [Concomitant]
     Dosage: 5 MG  1-2 PO EVERY 4-6 HOURS PRN
     Route: 048
  9. HYDROCHLOROTHIAZIDE [Concomitant]
     Route: 048
  10. NORVIR [Concomitant]
     Route: 048
  11. TRUVADA [Concomitant]
     Dosage: 1 TAB PO; 200/300 MG TAB EVERY DAY
     Route: 048
  12. ATAZANAVIR [Concomitant]
     Route: 048
  13. VALTREX [Concomitant]
     Route: 048
  14. TESTOSTERONE [Concomitant]
     Dosage: 25MG/2.5 G TRANSDERMAL GEL PACKET 2.5 G TOPICALLY BID.
     Route: 061
  15. VANCOMYCIN [Concomitant]
     Route: 042
     Dates: start: 20090606, end: 20090610
  16. CEPHALEXIN [Concomitant]
     Route: 048
  17. BACTRIM [Concomitant]
     Dosage: 160 MG/800 MG ;BID ;PO
     Route: 048

REACTIONS (1)
  - CELLULITIS [None]
